FAERS Safety Report 19213029 (Version 1)
Quarter: 2021Q2

REPORT INFORMATION
  Report Type: Other
  Country: US (occurrence: US)
  Receive Date: 20210504
  Receipt Date: 20210504
  Transmission Date: 20210717
  Serious: No
  Sender: FDA-Public Use
  Company Number: US-ROCHE-2584084

PATIENT
  Age: 54 Year
  Sex: Female

DRUGS (1)
  1. BEVACIZUMAB. [Suspect]
     Active Substance: BEVACIZUMAB
     Indication: COLORECTAL ADENOCARCINOMA
     Route: 042

REACTIONS (1)
  - Drug intolerance [Unknown]
